FAERS Safety Report 7549631-0 (Version None)
Quarter: 2011Q2

REPORT INFORMATION
  Report Type: 
  Country: None (occurrence: None)
  Receive Date: 20110615
  Receipt Date: 20110608
  Transmission Date: 20111010
  Serious: Yes (Hospitalization, Other)
  Sender: FDA-Public Use
  Company Number: US-JNJFOC-20101207069

PATIENT
  Sex: Female
  Weight: 76.2 kg

DRUGS (2)
  1. LEVAQUIN [Suspect]
     Indication: LOCALISED INFECTION
     Route: 048
     Dates: start: 20061201
  2. LEVAQUIN [Suspect]
     Indication: ARTHROPOD BITE
     Route: 048
     Dates: start: 20061201

REACTIONS (4)
  - ROTATOR CUFF SYNDROME [None]
  - DEPRESSION [None]
  - TENDONITIS [None]
  - TENDON RUPTURE [None]
